FAERS Safety Report 5595303-1 (Version None)
Quarter: 2008Q1

REPORT INFORMATION
  Report Type: 
  Country: None (occurrence: None)
  Receive Date: 20080117
  Receipt Date: 20080115
  Transmission Date: 20080703
  Serious: Yes (Other)
  Sender: FDA-Public Use
  Company Number: US-MERCK-0712USA09257

PATIENT
  Age: 72 Year
  Sex: Male

DRUGS (7)
  1. ZOCOR [Suspect]
     Indication: BLOOD CHOLESTEROL INCREASED
     Route: 048
     Dates: start: 20040101, end: 20071101
  2. GLIMEPIRIDE [Concomitant]
     Route: 065
  3. PRINIVIL [Concomitant]
     Route: 048
  4. HYDRODIURIL [Concomitant]
     Route: 048
  5. [THERAPY UNSPECIFIED] [Concomitant]
     Route: 065
  6. FLOMAX [Concomitant]
     Route: 065
     Dates: end: 20070101
  7. AVODART [Concomitant]
     Route: 065

REACTIONS (3)
  - MUSCULAR WEAKNESS [None]
  - MYALGIA [None]
  - MYOCARDIAL INFARCTION [None]
